FAERS Safety Report 17044466 (Version 1)
Quarter: 2019Q4

REPORT INFORMATION
  Report Type: Spontaneous
  Country: US (occurrence: US)
  Receive Date: 20191117
  Receipt Date: 20191117
  Transmission Date: 20200122
  Serious: Yes (Disabling)
  Sender: FDA-Public Use
  Company Number: None

PATIENT
  Age: 31 Year
  Sex: Male
  Weight: 72 kg

DRUGS (3)
  1. EMGALITY [Suspect]
     Active Substance: GALCANEZUMAB-GNLM
     Indication: MIGRAINE
     Dosage: ?          QUANTITY:1 INJECTION(S);OTHER FREQUENCY:ONCE/MONTH;?
     Route: 030
     Dates: start: 20190330, end: 20190430
  2. MELOXICAM. [Concomitant]
     Active Substance: MELOXICAM
  3. TRUVADA [Concomitant]
     Active Substance: EMTRICITABINE\TENOFOVIR DISOPROXIL FUMARATE

REACTIONS (4)
  - Disability [None]
  - Arthralgia [None]
  - Back pain [None]
  - Myalgia [None]

NARRATIVE: CASE EVENT DATE: 20190430
